FAERS Safety Report 24966846 (Version 2)
Quarter: 2025Q1

REPORT INFORMATION
  Report Type: Spontaneous
  Country: DK (occurrence: DK)
  Receive Date: 20250213
  Receipt Date: 20250214
  Transmission Date: 20250409
  Serious: Yes (Disabling)
  Sender: MYLAN
  Company Number: None

PATIENT
  Age: 55 Year
  Sex: Male
  Weight: 112 kg

DRUGS (2)
  1. METOPROLOL [Suspect]
     Active Substance: METOPROLOL
     Indication: Atrial flutter
     Dosage: DOSAGE: VARYING FROM 1 TABLET TWICE A DAY TO 4 TABLETS TWICE A DAY
     Route: 048
     Dates: start: 20221201, end: 2023
  2. METOPROLOL [Suspect]
     Active Substance: METOPROLOL
     Indication: Atrial flutter
     Dosage: 100 MILLIGRAM, BID (0.5 DAY)
     Route: 048
     Dates: start: 20221201, end: 20250124

REACTIONS (3)
  - Feeling abnormal [Recovered/Resolved]
  - Headache [Recovered/Resolved]
  - Vomiting [Recovered/Resolved]

NARRATIVE: CASE EVENT DATE: 20221201
